FAERS Safety Report 7979670-7 (Version None)
Quarter: 2011Q4

REPORT INFORMATION
  Report Type: 
  Country: None (occurrence: None)
  Receive Date: 20111214
  Receipt Date: 20111129
  Transmission Date: 20120403
  Serious: Yes (Other)
  Sender: FDA-Public Use
  Company Number: TR-WATSON-2011-21055

PATIENT
  Age: 42 Year
  Sex: Female

DRUGS (4)
  1. FEXOFENADINE [Suspect]
     Indication: URTICARIA
     Route: 048
  2. HYDROXYZINE PAMOATE [Suspect]
     Indication: URTICARIA
     Route: 048
  3. DESLORATADINE [Suspect]
     Indication: URTICARIA
     Route: 048
  4. CETIRIZINE HCL [Suspect]
     Indication: URTICARIA
     Dosage: CUMULATIVE DOSE OF 10MG
     Route: 048

REACTIONS (1)
  - URTICARIA [None]
